FAERS Safety Report 18754361 (Version 1)
Quarter: 2021Q1

REPORT INFORMATION
  Report Type: Spontaneous
  Country: US (occurrence: US)
  Receive Date: 20210119
  Receipt Date: 20210119
  Transmission Date: 20210419
  Serious: No
  Sender: FDA-Public Use
  Company Number: US-BEH-2021127272

PATIENT
  Age: 54 Year
  Sex: Female

DRUGS (13)
  1. HIZENTRA [Suspect]
     Active Substance: HUMAN IMMUNOGLOBULIN G
     Indication: HYPOGAMMAGLOBULINAEMIA
     Dosage: 12 GRAM, QW
     Route: 058
     Dates: start: 20191018
  2. DICLOFEN [DICLOFENAC SODIUM] [Concomitant]
  3. TOPIRAMATE. [Concomitant]
     Active Substance: TOPIRAMATE
  4. TRAMADOL HCL [Concomitant]
     Active Substance: TRAMADOL HYDROCHLORIDE
  5. LAMOTRIGINE. [Concomitant]
     Active Substance: LAMOTRIGINE
  6. RESTASIS [Concomitant]
     Active Substance: CYCLOSPORINE
  7. GABAPENTIN. [Concomitant]
     Active Substance: GABAPENTIN
  8. PREGABALIN. [Concomitant]
     Active Substance: PREGABALIN
  9. BUDESONIDE. [Concomitant]
     Active Substance: BUDESONIDE
  10. CYCLOBENZAPRIN [Concomitant]
     Active Substance: CYCLOBENZAPRINE
  11. CLONAZEPAM. [Concomitant]
     Active Substance: CLONAZEPAM
  12. MUPIROCIN. [Concomitant]
     Active Substance: MUPIROCIN
  13. VENLAFAXINE [Concomitant]
     Active Substance: VENLAFAXINE HYDROCHLORIDE

REACTIONS (1)
  - Pruritus [Not Recovered/Not Resolved]
